FAERS Safety Report 6010190-5 (Version None)
Quarter: 2008Q4

REPORT INFORMATION
  Report Type: 
  Country: None (occurrence: None)
  Receive Date: 20081217
  Receipt Date: 20081217
  Transmission Date: 20090506
  Serious: Yes (Life-Threatening)
  Sender: FDA-Public Use
  Company Number: None

PATIENT
  Age: 47 Year
  Sex: Male
  Weight: 78.4723 kg

DRUGS (1)
  1. SEROQUEL [Suspect]
     Dosage: 200 M.G.'S MORNINGS ORAL 450 M.G.'S NIGHTS ORAL
     Route: 048
     Dates: start: 20081124

REACTIONS (4)
  - MALAISE [None]
  - MUSCLE SPASMS [None]
  - MUSCULAR WEAKNESS [None]
  - SOMNOLENCE [None]
